FAERS Safety Report 8215436-0 (Version None)
Quarter: 2012Q1

REPORT INFORMATION
  Report Type: 
  Country: None (occurrence: None)
  Receive Date: 20120316
  Receipt Date: 20120308
  Transmission Date: 20120608
  Serious: Yes (Hospitalization)
  Sender: FDA-Public Use
  Company Number: FR-MPIJNJ-2012-01766

PATIENT

DRUGS (3)
  1. DEXAMETHASONE [Suspect]
     Indication: MULTIPLE MYELOMA
     Dosage: 20 MG, UNK
     Route: 048
     Dates: start: 20101109
  2. VELCADE [Suspect]
     Indication: MULTIPLE MYELOMA
     Dosage: 1.3 MG/M2, UNK
     Route: 042
     Dates: start: 20101109
  3. BENDAMUSTINE [Suspect]
     Indication: MULTIPLE MYELOMA
     Dosage: 70 MG/M2, UNK
     Route: 042
     Dates: start: 20101109, end: 20110628

REACTIONS (5)
  - ABDOMINAL DISCOMFORT [None]
  - ERUCTATION [None]
  - PRODUCTIVE COUGH [None]
  - DECREASED APPETITE [None]
  - NAUSEA [None]
